FAERS Safety Report 19745042 (Version 1)
Quarter: 2021Q3

REPORT INFORMATION
  Report Type: Spontaneous
  Country: IN (occurrence: IN)
  Receive Date: 20210825
  Receipt Date: 20210825
  Transmission Date: 20211014
  Serious: Yes (Other)
  Sender: FDA-Public Use
  Company Number: IN-PFIZER INC-2017308003

PATIENT
  Age: 63 Year
  Sex: Female

DRUGS (2)
  1. LETROZOLE. [Concomitant]
     Active Substance: LETROZOLE
     Dosage: UNK
  2. PALBACE [Suspect]
     Active Substance: PALBOCICLIB
     Indication: BREAST CANCER METASTATIC
     Dosage: 125 MG, 1X/DAY
     Route: 048
     Dates: start: 20170629, end: 2020

REACTIONS (24)
  - Movement disorder [Unknown]
  - Abdominal distension [Unknown]
  - Liver disorder [Unknown]
  - Hyperchlorhydria [Unknown]
  - Pain [Not Recovered/Not Resolved]
  - Diarrhoea [Recovered/Resolved]
  - Fatigue [Not Recovered/Not Resolved]
  - Haemoglobin decreased [Unknown]
  - White blood cell count decreased [Unknown]
  - Anxiety [Unknown]
  - Red blood cell count decreased [Unknown]
  - Haematocrit decreased [Unknown]
  - Arthralgia [Unknown]
  - Mouth ulceration [Unknown]
  - Diabetes mellitus [Unknown]
  - Bone pain [Unknown]
  - Decreased appetite [Unknown]
  - Irritability [Unknown]
  - Pyrexia [Unknown]
  - Restlessness [Unknown]
  - Red cell distribution width increased [Unknown]
  - Illness [Unknown]
  - Pleural effusion [Unknown]
  - Vomiting [Unknown]

NARRATIVE: CASE EVENT DATE: 20170712
